FAERS Safety Report 15964872 (Version 2)
Quarter: 2019Q1

REPORT INFORMATION
  Report Type: Spontaneous
  Country: ES (occurrence: ES)
  Receive Date: 20190215
  Receipt Date: 20190304
  Transmission Date: 20190418
  Serious: Yes (Hospitalization)
  Sender: FDA-Public Use
  Company Number: ES-ROCHE-2262466

PATIENT
  Age: 86 Year
  Sex: Female

DRUGS (6)
  1. DEXKETOPROFENO [Suspect]
     Active Substance: DEXKETOPROFEN
     Indication: SCIATICA
     Route: 065
  2. PREDNISONA [Suspect]
     Active Substance: PREDNISONE
     Indication: PAIN
     Route: 065
  3. DIAZEPAM. [Suspect]
     Active Substance: DIAZEPAM
     Indication: SCIATICA
     Route: 065
  4. PARACETAMOL/TRAMADOL HYDROCHLORIDE [Suspect]
     Active Substance: ACETAMINOPHEN\TRAMADOL HYDROCHLORIDE
     Indication: SCIATICA
     Dosage: STRENGTH: 37.5/325 MG.?UNIT DOSE: 37.5/325 MG.?DIALY DOSE: 112.5/975 MG.
     Route: 065
  5. METAMIZOL [Suspect]
     Active Substance: METAMIZOLE SODIUM
     Indication: SCIATICA
     Route: 065
  6. OMEPRAZOLE. [Concomitant]
     Active Substance: OMEPRAZOLE
     Route: 065

REACTIONS (2)
  - Transaminases increased [Recovered/Resolved]
  - Cholestasis [Recovered/Resolved]
